FAERS Safety Report 16471096 (Version 2)
Quarter: 2019Q3

REPORT INFORMATION
  Report Type: Spontaneous
  Country: IT (occurrence: IT)
  Receive Date: 20190624
  Receipt Date: 20190726
  Transmission Date: 20191004
  Serious: Yes (Death)
  Sender: FDA-Public Use
  Company Number: IT-ASTRAZENECA-2019SE89956

PATIENT
  Sex: Male

DRUGS (14)
  1. INSULIN [Concomitant]
     Active Substance: INSULIN NOS
     Indication: DIABETES MELLITUS
  2. AMIODARONE [Concomitant]
     Active Substance: AMIODARONE
  3. SILODYX [Concomitant]
     Active Substance: SILODOSIN
  4. MEDROL [Concomitant]
     Active Substance: METHYLPREDNISOLONE
     Dosage: 16 MG 1/2 TABLET AT 8 AM
  5. PANTOPRAZOLE [Concomitant]
     Active Substance: PANTOPRAZOLE
  6. OLPRESS [Concomitant]
     Active Substance: OLMESARTAN MEDOXOMIL
  7. LANTUS [Concomitant]
     Active Substance: INSULIN GLARGINE
  8. TAVOR [Concomitant]
     Indication: INSOMNIA
  9. INSULIN LISPRO [Concomitant]
     Active Substance: INSULIN LISPRO
  10. TAGRISSO [Suspect]
     Active Substance: OSIMERTINIB
     Indication: NON-SMALL CELL LUNG CANCER
     Route: 048
     Dates: start: 20190527, end: 20190604
  11. TAGRISSO [Suspect]
     Active Substance: OSIMERTINIB
     Indication: NON-SMALL CELL LUNG CANCER
     Route: 048
     Dates: start: 20190423
  12. AVODART [Concomitant]
     Active Substance: DUTASTERIDE
  13. BISOPROLOL [Concomitant]
     Active Substance: BISOPROLOL
  14. LASIX [Concomitant]
     Active Substance: FUROSEMIDE

REACTIONS (1)
  - Cardio-respiratory arrest [Fatal]

NARRATIVE: CASE EVENT DATE: 20190604
